FAERS Safety Report 5656261-4 (Version None)
Quarter: 2008Q1

REPORT INFORMATION
  Report Type: 
  Country: None (occurrence: None)
  Receive Date: 20080305
  Receipt Date: 20071231
  Transmission Date: 20080703
  Serious: Yes (Death)
  Sender: FDA-Public Use
  Company Number: 2008AL001116

PATIENT
  Age: 30 Year
  Sex: Male

DRUGS (3)
  1. DIAZEPAM TABLETS USP, 10 MG (PUREPAC) (DIAZEPAM 1 TABLETS USP, 10 MG ( [Suspect]
  2. LIDOCAINE [Concomitant]
  3. BUPRENORPHINE HCL [Concomitant]

REACTIONS (1)
  - DEATH [None]
